FAERS Safety Report 8980507 (Version 6)
Quarter: 2013Q2

REPORT INFORMATION
  Report Type: Spontaneous
  Country: FR (occurrence: FR)
  Receive Date: 20121221
  Receipt Date: 20130617
  Transmission Date: 20140414
  Serious: Yes (Other)
  Sender: FDA-Public Use
  Company Number: FR-TEVA-376023ISR

PATIENT
  Sex: Female

DRUGS (8)
  1. BISOPROLOL RATIOPHARM 10 MG SCORED TABLET [Suspect]
     Indication: CARDIOMYOPATHY
     Dosage: 10 MILLIGRAM DAILY;
     Route: 048
     Dates: start: 201102, end: 20130523
  2. BISOPROLOL RATIOPHARM 10 MG SCORED TABLET [Suspect]
     Indication: PULMONARY OEDEMA
     Dosage: 2.5 MILLIGRAM DAILY;
     Route: 048
     Dates: start: 20130524
  3. PERINDOPRIL 8 MG [Concomitant]
     Indication: CARDIOMYOPATHY
     Dosage: 8 MILLIGRAM DAILY;
     Route: 048
     Dates: start: 201102
  4. PERINDOPRIL 8 MG [Concomitant]
     Indication: PULMONARY OEDEMA
  5. TILCOTIL [Concomitant]
     Indication: PAIN
  6. ALDACTONE 25 MG [Concomitant]
     Dosage: 12.5 MILLIGRAM DAILY;
     Route: 048
     Dates: start: 201211
  7. DOLENIO [Concomitant]
     Indication: OSTEOARTHRITIS
  8. PROCORALAN [Concomitant]
     Dosage: 10 MILLIGRAM DAILY;
     Dates: start: 20130514

REACTIONS (8)
  - Muscle fatigue [Not Recovered/Not Resolved]
  - Mobility decreased [Not Recovered/Not Resolved]
  - Pain [Not Recovered/Not Resolved]
  - Paraneoplastic syndrome [Not Recovered/Not Resolved]
  - Myopathy [Not Recovered/Not Resolved]
  - Inclusion body myositis [Not Recovered/Not Resolved]
  - Gait disturbance [Not Recovered/Not Resolved]
  - Pain in extremity [Not Recovered/Not Resolved]
